FAERS Safety Report 8011253-5 (Version None)
Quarter: 2011Q4

REPORT INFORMATION
  Report Type: 
  Country: None (occurrence: None)
  Receive Date: 20111227
  Receipt Date: 20111227
  Transmission Date: 20120403
  Serious: Yes (Other)
  Sender: FDA-Public Use
  Company Number: None

PATIENT
  Age: 76 Year
  Sex: Female
  Weight: 56.699 kg

DRUGS (1)
  1. SIMPONI [Suspect]
     Indication: RHEUMATOID ARTHRITIS
     Dosage: 1/2 CC
     Route: 058
     Dates: start: 20111123, end: 20111123

REACTIONS (5)
  - DYSPNOEA [None]
  - DYSPHAGIA [None]
  - MOUTH ULCERATION [None]
  - ANAL ABSCESS [None]
  - MALAISE [None]
